FAERS Safety Report 23044597 (Version 1)
Quarter: 2023Q4

REPORT INFORMATION
  Report Type: Spontaneous
  Country: IE (occurrence: IE)
  Receive Date: 20231009
  Receipt Date: 20231009
  Transmission Date: 20240110
  Serious: Yes (Other)
  Sender: FDA-Public Use
  Company Number: IE-PFIZER INC-202300308983

PATIENT
  Age: 10 Year

DRUGS (5)
  1. SPORANOX [Interacting]
     Active Substance: ITRACONAZOLE
     Indication: Antifungal prophylaxis
     Dosage: 5 MG/KG, 1X/DAY, 2 DAYS
     Route: 048
  2. VINCRISTINE SULFATE [Interacting]
     Active Substance: VINCRISTINE SULFATE
     Indication: Acute lymphocytic leukaemia
     Dosage: D1, 8, 15, 22
     Route: 065
  3. PREDNISOLONE [Concomitant]
     Active Substance: PREDNISOLONE
     Dosage: UNK, DAILY
  4. ASPARAGINASE [Concomitant]
     Active Substance: ASPARAGINASE
     Dosage: UNK, DAILY
  5. DAUNORUBICIN [Concomitant]
     Active Substance: DAUNORUBICIN

REACTIONS (8)
  - Constipation [Recovered/Resolved]
  - Depression [Recovered/Resolved]
  - Seizure [Recovered/Resolved]
  - Hypertension [Recovered/Resolved]
  - Neurotoxicity [Not Recovered/Not Resolved]
  - Drug interaction [Unknown]
  - Electroencephalogram abnormal [Recovered/Resolved]
  - Abdominal pain [Recovered/Resolved]
